FAERS Safety Report 21623293 (Version 1)
Quarter: 2022Q4

REPORT INFORMATION
  Report Type: Spontaneous
  Country: US (occurrence: US)
  Receive Date: 20221121
  Receipt Date: 20221121
  Transmission Date: 20230113
  Serious: Yes (Disabling, Other)
  Sender: FDA-Public Use
  Company Number: US-AMGEN-USASP2022196675

PATIENT
  Age: 71 Year
  Sex: Female

DRUGS (1)
  1. PROLIA [Suspect]
     Active Substance: DENOSUMAB
     Indication: Osteoporosis postmenopausal
     Dosage: 60 MILLIGRAM, Q6MO
     Route: 058
     Dates: end: 2021

REACTIONS (9)
  - Shock [Recovering/Resolving]
  - Gait disturbance [Recovering/Resolving]
  - Muscle disorder [Recovering/Resolving]
  - Blood calcium increased [Recovering/Resolving]
  - Pain in jaw [Recovered/Resolved]
  - Trigger finger [Not Recovered/Not Resolved]
  - Arthralgia [Recovering/Resolving]
  - Back pain [Recovering/Resolving]
  - Eczema [Recovering/Resolving]
